FAERS Safety Report 6573125-2 (Version None)
Quarter: 2010Q1

REPORT INFORMATION
  Report Type: 
  Country: None (occurrence: None)
  Receive Date: 20100208
  Receipt Date: 20100129
  Transmission Date: 20100710
  Serious: Yes (Other)
  Sender: FDA-Public Use
  Company Number: US-JNJFOC-20060906237

PATIENT
  Sex: Female
  Weight: 72.58 kg

DRUGS (6)
  1. RISPERDAL [Suspect]
     Indication: BIPOLAR DISORDER
     Route: 065
  2. RISPERDAL [Suspect]
     Indication: SLEEP DISORDER
     Route: 065
  3. LITHIUM CARBONATE [Suspect]
     Indication: BIPOLAR DISORDER
     Dosage: 600/900 MG
     Route: 065
  4. PREMARIN [Concomitant]
     Route: 065
  5. LIPITOR [Concomitant]
     Route: 065
  6. LOPID [Concomitant]
     Route: 065

REACTIONS (4)
  - DIABETES MELLITUS [None]
  - DIARRHOEA [None]
  - MUSCULOSKELETAL STIFFNESS [None]
  - SEDATION [None]
